FAERS Safety Report 5222592-5 (Version None)
Quarter: 2007Q1

REPORT INFORMATION
  Report Type: 
  Country: None (occurrence: None)
  Receive Date: 20070124
  Receipt Date: 20070109
  Transmission Date: 20070707
  Serious: Yes (Hospitalization, Other)
  Sender: FDA-Public Use
  Company Number: 2007BI000983

PATIENT
  Sex: Male
  Weight: 122.4712 kg

DRUGS (9)
  1. NATALIZUMAB [Suspect]
     Indication: MULTIPLE SCLEROSIS
     Dosage: 300 MG; QM; IV
     Route: 042
     Dates: start: 20061128
  2. AVONEX [Concomitant]
  3. GLUCOPHAGE [Concomitant]
  4. ZESTRIL [Concomitant]
  5. LIPITOR [Concomitant]
  6. VITAMINS [Concomitant]
  7. BACLOFEN [Concomitant]
  8. PSYCHIATRIC MEDS [Concomitant]
  9. LUNESTA [Concomitant]

REACTIONS (11)
  - ABSCESS [None]
  - BACTERIAL INFECTION [None]
  - CELLULITIS [None]
  - CHEST WALL ABSCESS [None]
  - FOLLICULITIS [None]
  - HEADACHE [None]
  - HERPES SIMPLEX [None]
  - MUSCULOSKELETAL PAIN [None]
  - NAUSEA [None]
  - STAPHYLOCOCCAL INFECTION [None]
  - TENDONITIS [None]
